FAERS Safety Report 7098996-5 (Version None)
Quarter: 2010Q4

REPORT INFORMATION
  Report Type: 
  Country: None (occurrence: None)
  Receive Date: 20101112
  Receipt Date: 20101022
  Transmission Date: 20110411
  Serious: Yes (Other)
  Sender: FDA-Public Use
  Company Number: DE-BAYER-201045968GPV

PATIENT
  Age: 21 Year
  Sex: Female

DRUGS (2)
  1. DROSPIRENONE AND ETHINYL ESTRADIOL [Suspect]
     Indication: CONTRACEPTION
     Route: 048
     Dates: end: 20081001
  2. YAZ [Suspect]
     Route: 048
     Dates: start: 20090401

REACTIONS (16)
  - ABDOMINAL PAIN [None]
  - ANXIETY [None]
  - BREAST PAIN [None]
  - CHEST DISCOMFORT [None]
  - DIARRHOEA [None]
  - DYSPEPSIA [None]
  - EXTRASYSTOLES [None]
  - FUNGAL INFECTION [None]
  - GENERAL PHYSICAL HEALTH DETERIORATION [None]
  - HEADACHE [None]
  - HEART RATE INCREASED [None]
  - NERVOUSNESS [None]
  - PAIN IN EXTREMITY [None]
  - RASH [None]
  - RESTLESSNESS [None]
  - WEIGHT INCREASED [None]
